FAERS Safety Report 23135610 (Version 3)
Quarter: 2024Q4

REPORT INFORMATION
  Report Type: Spontaneous
  Country: US (occurrence: US)
  Receive Date: 20231101
  Receipt Date: 20241121
  Transmission Date: 20250115
  Serious: Yes (Other)
  Sender: PFIZER
  Company Number: US-PFIZER INC-PV202300179160

PATIENT
  Age: 72 Year
  Sex: Female
  Weight: 94.6 kg

DRUGS (20)
  1. IBRANCE [Suspect]
     Active Substance: PALBOCICLIB
     Indication: Breast cancer female
     Dosage: 125 MG, DAILY
     Route: 048
     Dates: start: 201904
  2. IBRANCE [Suspect]
     Active Substance: PALBOCICLIB
     Indication: Breast cancer
     Dosage: CYCLE 1: 100 MG DAILY (3 WEEKS ON AND 1 WEEK OFF)
     Route: 048
     Dates: start: 20220207
  3. IBRANCE [Suspect]
     Active Substance: PALBOCICLIB
     Indication: Bone neoplasm
     Dosage: CYCLE 2
     Dates: start: 20220307
  4. IBRANCE [Suspect]
     Active Substance: PALBOCICLIB
     Indication: Breast cancer metastatic
     Dosage: CYCLE 3
     Dates: start: 20220405
  5. IBRANCE [Suspect]
     Active Substance: PALBOCICLIB
     Dosage: CYCLE 4
     Dates: start: 20220503
  6. IBRANCE [Suspect]
     Active Substance: PALBOCICLIB
     Dosage: CYCLE 5
     Dates: start: 20220531
  7. IBRANCE [Suspect]
     Active Substance: PALBOCICLIB
     Dosage: CYCLE 6
     Dates: start: 20220628
  8. IBRANCE [Suspect]
     Active Substance: PALBOCICLIB
     Dosage: CYCLE 7
     Dates: start: 20220726
  9. IBRANCE [Suspect]
     Active Substance: PALBOCICLIB
     Dosage: CYCLE 8
     Dates: start: 20220826
  10. IBRANCE [Suspect]
     Active Substance: PALBOCICLIB
     Dosage: CYCLE 9
     Dates: start: 20220930
  11. IBRANCE [Suspect]
     Active Substance: PALBOCICLIB
     Dosage: CYCLE 10
     Dates: start: 20221027
  12. IBRANCE [Suspect]
     Active Substance: PALBOCICLIB
     Dosage: CYCLE 11
     Dates: start: 20221123
  13. IBRANCE [Suspect]
     Active Substance: PALBOCICLIB
     Dosage: CYCLE 12: RESTARTED
     Dates: start: 202303
  14. IBRANCE [Suspect]
     Active Substance: PALBOCICLIB
     Dosage: CYCLE 13
     Dates: start: 20230410
  15. IBRANCE [Suspect]
     Active Substance: PALBOCICLIB
     Dosage: CYCLE 14
     Dates: start: 20230515
  16. IBRANCE [Suspect]
     Active Substance: PALBOCICLIB
     Dosage: CYCLE 15
     Dates: start: 20230612
  17. IBRANCE [Suspect]
     Active Substance: PALBOCICLIB
     Dosage: 100 MG, 3 WEEKS ON AND 1 WEEK OFF
     Route: 048
     Dates: start: 20231003
  18. IBRANCE [Suspect]
     Active Substance: PALBOCICLIB
     Dosage: 5 DAYS ON AND 2 DAYS OFF
     Dates: start: 20241029
  19. FASLODEX [Suspect]
     Active Substance: FULVESTRANT
     Indication: Breast cancer female
     Dosage: EVERY 4 WEEKS
  20. XGEVA [Suspect]
     Active Substance: DENOSUMAB
     Indication: Breast cancer female
     Dosage: EVERY 4 WEEKS STARTED LOCALLY

REACTIONS (8)
  - Neutropenia [Unknown]
  - Shoulder operation [Unknown]
  - Pancytopenia [Unknown]
  - Fatigue [Unknown]
  - Asthenia [Unknown]
  - Limb discomfort [Unknown]
  - Off label use [Unknown]
  - Product use issue [Unknown]

NARRATIVE: CASE EVENT DATE: 20220101
